FAERS Safety Report 4981966-8 (Version None)
Quarter: 2006Q2

REPORT INFORMATION
  Report Type: 
  Country: None (occurrence: None)
  Receive Date: 20060425
  Receipt Date: 20060111
  Transmission Date: 20061013
  Serious: Yes (Hospitalization)
  Sender: FDA-Public Use
  Company Number: US-MERCK-0601USA01329

PATIENT
  Age: 56 Year
  Sex: Female
  Weight: 90 kg

DRUGS (16)
  1. VIOXX [Suspect]
     Indication: FIBROMYALGIA
     Route: 048
     Dates: start: 20020603, end: 20040227
  2. COZAAR [Concomitant]
     Indication: HYPERTENSION
     Route: 065
  3. CARTIA (DILTIAZEM HYDROCHLORIDE) [Concomitant]
     Route: 065
  4. LASIX [Concomitant]
     Route: 065
  5. LIPITOR [Concomitant]
     Route: 065
  6. CARAFATE [Concomitant]
     Route: 065
  7. DIFLUCAN [Concomitant]
     Route: 065
  8. GLUCOVANCE [Concomitant]
     Route: 065
  9. LEVOXYL [Concomitant]
     Route: 065
  10. NITROSTAT [Concomitant]
     Route: 065
  11. PYRIDIUM [Concomitant]
     Route: 065
  12. POTASSIUM CHLORIDE [Concomitant]
     Route: 065
  13. PREMARIN [Concomitant]
     Route: 065
  14. PREVACID [Concomitant]
     Route: 065
  15. SKELAXIN [Concomitant]
     Route: 065
  16. SULFAMETHOXAZOLE AND TRIMETHOPRIM [Concomitant]
     Route: 065

REACTIONS (9)
  - ARTERIOSCLEROSIS [None]
  - CARDIAC FAILURE CONGESTIVE [None]
  - CARDIAC MURMUR [None]
  - CHEST PAIN [None]
  - CORONARY ARTERY OCCLUSION [None]
  - DIABETES MELLITUS [None]
  - GASTROOESOPHAGEAL REFLUX DISEASE [None]
  - HYPERTENSION [None]
  - MYOCARDIAL INFARCTION [None]
